FAERS Safety Report 9212493 (Version 2)
Quarter: 2014Q1

REPORT INFORMATION
  Report Type: Spontaneous
  Country: US (occurrence: US)
  Receive Date: 20130405
  Receipt Date: 20140326
  Transmission Date: 20141002
  Serious: Yes (Hospitalization, Other)
  Sender: FDA-Public Use
  Company Number: US-AMGEN-USASP2013022661

PATIENT
  Age: 57 Year
  Sex: Female

DRUGS (1)
  1. ENBREL [Suspect]
     Indication: RHEUMATOID ARTHRITIS
     Dosage: 25 MG, TWICE A WEEK
     Route: 065
     Dates: start: 20040722, end: 2013

REACTIONS (18)
  - Chronic lymphocytic leukaemia [Recovered/Resolved]
  - Blood calcium decreased [Recovered/Resolved]
  - Gastrointestinal disorder [Recovered/Resolved]
  - Renal disorder [Recovered/Resolved]
  - Convulsion [Recovered/Resolved]
  - Pneumonia [Recovered/Resolved]
  - Loss of consciousness [Recovered/Resolved]
  - White blood cell count increased [Recovered/Resolved]
  - Blood viscosity increased [Recovered/Resolved]
  - Body temperature increased [Recovered/Resolved]
  - Spinal fracture [Recovered/Resolved]
  - Asthma [Not Recovered/Not Resolved]
  - Back pain [Recovered/Resolved]
  - Musculoskeletal pain [Not Recovered/Not Resolved]
  - Pain in extremity [Not Recovered/Not Resolved]
  - Arthralgia [Not Recovered/Not Resolved]
  - Motor dysfunction [Not Recovered/Not Resolved]
  - Asthenia [Not Recovered/Not Resolved]
